FAERS Safety Report 21299258 (Version 4)
Quarter: 2022Q4

REPORT INFORMATION
  Report Type: Report from Study
  Country: DE (occurrence: DE)
  Receive Date: 20220906
  Receipt Date: 20221019
  Transmission Date: 20230113
  Serious: Yes (Hospitalization, Other)
  Sender: FDA-Public Use
  Company Number: DE-BRISTOL-MYERS SQUIBB COMPANY-2022-098496

PATIENT
  Age: 60 Year
  Sex: Male
  Weight: 73 kg

DRUGS (3)
  1. PLACEBO [Suspect]
     Active Substance: UNSPECIFIED INGREDIENT
     Indication: Myelofibrosis
     Dosage: ACTION TAKEN: DRUG INTERRUPTED?PRIOR TO THE EVENT ONSET, THE PATIENT RECEIVED HIS MOST RECENT DOSE O
     Route: 058
     Dates: start: 20220511
  2. PLACEBO [Suspect]
     Active Substance: UNSPECIFIED INGREDIENT
     Route: 058
     Dates: start: 20220808
  3. DEFERASIROX [Concomitant]
     Active Substance: DEFERASIROX
     Indication: Product used for unknown indication
     Dosage: ONGOING
     Route: 048
     Dates: start: 20220827

REACTIONS (1)
  - Retinal vein thrombosis [Not Recovered/Not Resolved]

NARRATIVE: CASE EVENT DATE: 20220830
